FAERS Safety Report 12668783 (Version 1)
Quarter: 2016Q3

REPORT INFORMATION
  Report Type: Spontaneous
  Country: IL (occurrence: IL)
  Receive Date: 20160819
  Receipt Date: 20160819
  Transmission Date: 20161109
  Serious: Yes (Hospitalization)
  Sender: FDA-Public Use
  Company Number: IL-CELGENEUS-ISR-2016081888

PATIENT
  Age: 82 Year
  Sex: Female
  Weight: 72 kg

DRUGS (7)
  1. OPTALGIN [Concomitant]
     Active Substance: METAMIZOLE
     Indication: HEADACHE
     Dosage: 5.7143 MILLIGRAM
     Route: 048
     Dates: start: 20150106
  2. LACTULOSE. [Concomitant]
     Active Substance: LACTULOSE
     Indication: CONSTIPATION
     Route: 048
     Dates: start: 20150101
  3. CARDILOC [Concomitant]
     Active Substance: BISOPROLOL FUMARATE
     Indication: HYPERTENSION
     Route: 048
     Dates: start: 20160122
  4. REKOD [Concomitant]
     Indication: COUGH
     Route: 048
     Dates: start: 20160316
  5. REVLIMID [Suspect]
     Active Substance: LENALIDOMIDE
     Indication: PLASMA CELL MYELOMA
     Dosage: 25 MILLIGRAM
     Route: 048
     Dates: start: 20150121
  6. DEXAMETHASONE. [Suspect]
     Active Substance: DEXAMETHASONE
     Indication: PLASMA CELL MYELOMA
     Route: 048
     Dates: start: 20150121
  7. OPTALGIN [Concomitant]
     Active Substance: METAMIZOLE
     Indication: BONE PAIN

REACTIONS (1)
  - Sarcoidosis [Recovering/Resolving]

NARRATIVE: CASE EVENT DATE: 20160503
